FAERS Safety Report 5874153-2 (Version None)
Quarter: 2008Q3

REPORT INFORMATION
  Report Type: 
  Country: None (occurrence: None)
  Receive Date: 20080908
  Receipt Date: 20080731
  Transmission Date: 20090109
  Serious: Yes (Other)
  Sender: FDA-Public Use
  Company Number: GB-BAXTER-2008BH008147

PATIENT
  Age: 68 Year
  Sex: Male
  Weight: 86 kg

DRUGS (8)
  1. GAMMAGARD LIQUID [Suspect]
     Indication: IMMUNODEFICIENCY COMMON VARIABLE
     Dosage: DOSE UNIT:UNKNOWN
     Route: 042
     Dates: start: 20080730, end: 20080730
  2. LOSARTAN POTASSIUM [Concomitant]
     Route: 048
  3. ASPIRIN [Concomitant]
     Route: 048
  4. ALLOPURINOL [Concomitant]
     Route: 048
  5. BISOPROLOL FUMARATE [Concomitant]
     Route: 048
  6. ATORVASTATIN [Concomitant]
     Route: 048
  7. ISOSORBIDE MONONITRATE [Concomitant]
     Route: 048
  8. NITROGLYCERIN [Concomitant]
     Route: 060

REACTIONS (2)
  - BACK PAIN [None]
  - BLOOD PRESSURE DECREASED [None]
